FAERS Safety Report 7285865-0 (Version None)
Quarter: 2011Q1

REPORT INFORMATION
  Report Type: 
  Country: None (occurrence: None)
  Receive Date: 20110210
  Receipt Date: 20110203
  Transmission Date: 20110831
  Serious: Yes (Hospitalization)
  Sender: FDA-Public Use
  Company Number: US-US-EMD SERONO, INC.-7040374

PATIENT
  Sex: Female
  Weight: 90 kg

DRUGS (2)
  1. AVONEX [Concomitant]
     Dates: start: 20100801, end: 20100801
  2. REBIF [Suspect]
     Indication: MULTIPLE SCLEROSIS
     Route: 058
     Dates: start: 20070125

REACTIONS (2)
  - GASTROINTESTINAL ULCER HAEMORRHAGE [None]
  - INJECTION SITE NODULE [None]
